FAERS Safety Report 14019490 (Version 1)
Quarter: 2017Q3

REPORT INFORMATION
  Report Type: Report from Study
  Country: BR (occurrence: BR)
  Receive Date: 20170928
  Receipt Date: 20170928
  Transmission Date: 20171128
  Serious: Yes (Other)
  Sender: FDA-Public Use
  Company Number: PHHY2016BR170312

PATIENT
  Sex: Female
  Weight: 26 kg

DRUGS (2)
  1. OMNITROPE [Suspect]
     Active Substance: SOMATROPIN
     Dosage: 0.50 MG, UNK
     Route: 058
  2. OMNITROPE [Suspect]
     Active Substance: SOMATROPIN
     Indication: GROWTH HORMONE DEFICIENCY
     Dosage: 0.70 MG, UNK
     Route: 058
     Dates: start: 20160510

REACTIONS (3)
  - Headache [Unknown]
  - Migraine [Unknown]
  - Sinusitis [Unknown]
